FAERS Safety Report 22234928 (Version 1)
Quarter: 2023Q2

REPORT INFORMATION
  Report Type: Spontaneous
  Country: US (occurrence: None)
  Receive Date: 20230419
  Receipt Date: 20230419
  Transmission Date: 20230721
  Serious: No
  Sender: FDA-Public Use
  Company Number: None

PATIENT
  Age: 74 Year
  Sex: Male
  Weight: 128.82 kg

DRUGS (18)
  1. ABIRATERONE ACETATE [Suspect]
     Active Substance: ABIRATERONE ACETATE
     Indication: Prostate cancer
     Dosage: 1000MG DAILY ORAL
     Route: 048
     Dates: start: 20230322
  2. AMLODPINE [Concomitant]
  3. CLONAZEPAM [Concomitant]
  4. MELATONIN [Concomitant]
  5. ELIQUIS [Concomitant]
     Active Substance: APIXABAN
  6. FINASTERID [Concomitant]
  7. FUROSEMIDE [Concomitant]
  8. LOSARTAN [Concomitant]
  9. LUPRON [Concomitant]
  10. METOPROLOL [Concomitant]
  11. MIRTAZAPINE [Concomitant]
     Active Substance: MIRTAZAPINE
  12. OXYBUTYNIN [Concomitant]
  13. PREDNISONE [Concomitant]
  14. PROTONIX [Concomitant]
  15. QUETIAPINE [Concomitant]
  16. TAMSULOSIN [Concomitant]
  17. TAMULOSIN [Concomitant]
  18. VENLAFAXINE [Concomitant]

REACTIONS (5)
  - Headache [None]
  - Fatigue [None]
  - Cyanosis [None]
  - Decreased appetite [None]
  - Insomnia [None]
